FAERS Safety Report 14034937 (Version 1)
Quarter: 2017Q4

REPORT INFORMATION
  Report Type: Spontaneous
  Country: SE (occurrence: SE)
  Receive Date: 20171003
  Receipt Date: 20171003
  Transmission Date: 20180321
  Serious: Yes (Other)
  Sender: FDA-Public Use
  Company Number: SE-ELI_LILLY_AND_COMPANY-SE201709008724

PATIENT
  Age: 73 Year
  Sex: Male

DRUGS (2)
  1. ZYPREXA [Suspect]
     Active Substance: OLANZAPINE
     Indication: PRODUCT USED FOR UNKNOWN INDICATION
     Dosage: UNK UNK, UNKNOWN
     Route: 065
  2. ANAFRANIL [Concomitant]
     Active Substance: CLOMIPRAMINE HYDROCHLORIDE
     Indication: PRODUCT USED FOR UNKNOWN INDICATION
     Dosage: UNK UNK, UNKNOWN
     Route: 065

REACTIONS (11)
  - Varicose vein [Unknown]
  - Inflammation [Unknown]
  - Blood pressure decreased [Unknown]
  - Grimacing [Unknown]
  - Suicide attempt [Unknown]
  - Abdominal distension [Unknown]
  - Overdose [Unknown]
  - Spinal fracture [Unknown]
  - Epilepsy [Unknown]
  - Seizure [Unknown]
  - Dyskinesia [Unknown]

NARRATIVE: CASE EVENT DATE: 201708
